FAERS Safety Report 5068782-6 (Version None)
Quarter: 2006Q3

REPORT INFORMATION
  Report Type: 
  Country: None (occurrence: None)
  Receive Date: 20060802
  Receipt Date: 20060329
  Transmission Date: 20061208
  Serious: Yes (Hospitalization)
  Sender: FDA-Public Use
  Company Number: US-BRISTOL-MYERS SQUIBB COMPANY-13331293

PATIENT
  Age: 86 Year
  Sex: Female

DRUGS (6)
  1. COUMADIN [Suspect]
  2. ASPIRIN [Interacting]
  3. LEXAPRO [Interacting]
     Indication: DEPRESSION
     Route: 048
     Dates: start: 20060207, end: 20060318
  4. VERAPAMIL [Concomitant]
  5. ARSENIC [Concomitant]
  6. MELPHALAN [Concomitant]

REACTIONS (4)
  - DRUG INTERACTION [None]
  - GASTROINTESTINAL HAEMORRHAGE [None]
  - HAEMATOCRIT DECREASED [None]
  - PLATELET COUNT DECREASED [None]
